FAERS Safety Report 11265521 (Version 1)
Quarter: 2015Q3

REPORT INFORMATION
  Report Type: Spontaneous
  Country: US (occurrence: None)
  Receive Date: 20150710
  Receipt Date: 20150710
  Transmission Date: 20151125
  Serious: Yes (Hospitalization)
  Sender: FDA-Public Use
  Company Number: None

PATIENT
  Age: 65 Year
  Sex: Male
  Weight: 62.2 kg

DRUGS (8)
  1. ASPIRIN. [Concomitant]
     Active Substance: ASPIRIN
  2. HUMALOG [Concomitant]
     Active Substance: INSULIN LISPRO
  3. SYNTHROID [Concomitant]
     Active Substance: LEVOTHYROXINE SODIUM
  4. NITROSTAT [Concomitant]
     Active Substance: NITROGLYCERIN
  5. PRAVASTATIN [Concomitant]
     Active Substance: PRAVASTATIN\PRAVASTATIN SODIUM
  6. LASIX [Concomitant]
     Active Substance: FUROSEMIDE
  7. RAMIPRIL. [Concomitant]
     Active Substance: RAMIPRIL
  8. BRILINTA [Suspect]
     Active Substance: TICAGRELOR
     Indication: THROMBOSIS PROPHYLAXIS
     Route: 048
     Dates: start: 20150701, end: 20150709

REACTIONS (6)
  - Asthenia [None]
  - Nausea [None]
  - Fatigue [None]
  - Blood creatinine increased [None]
  - Dyspnoea [None]
  - Blood urea increased [None]

NARRATIVE: CASE EVENT DATE: 20150706
